FAERS Safety Report 13586015 (Version 2)
Quarter: 2017Q3

REPORT INFORMATION
  Report Type: Spontaneous
  Country: AU (occurrence: AU)
  Receive Date: 20170526
  Receipt Date: 20170817
  Transmission Date: 20171127
  Serious: Yes (Other)
  Sender: FDA-Public Use
  Company Number: AU-AMGEN-AUSSP2017039467

PATIENT
  Age: 73 Year
  Sex: Female
  Weight: 65 kg

DRUGS (1)
  1. PROLIA [Suspect]
     Active Substance: DENOSUMAB
     Indication: OSTEOPOROSIS
     Dosage: UNK
     Route: 058
     Dates: start: 20161224

REACTIONS (6)
  - Dry mouth [Recovering/Resolving]
  - Nerve injury [Unknown]
  - Malaise [Unknown]
  - Pain in jaw [Not Recovered/Not Resolved]
  - Depression [Unknown]
  - Ear pain [Not Recovered/Not Resolved]
